FAERS Safety Report 4427692-5 (Version None)
Quarter: 2004Q3

REPORT INFORMATION
  Report Type: 
  Country: None (occurrence: None)
  Receive Date: 20040817
  Receipt Date: 19950317
  Transmission Date: 20050211
  Serious: Yes (Hospitalization, Disabling, Other)
  Sender: FDA-Public Use
  Company Number: USA/95/00732/PLO

PATIENT
  Age: 26 Year
  Sex: Female
  Weight: 61 kg

DRUGS (1)
  1. PARLODEL [Suspect]
     Dosage: 2.5 MG, BID
     Route: 048
     Dates: start: 19930120, end: 19930204

REACTIONS (27)
  - ATROPHY [None]
  - CEREBELLAR SYNDROME [None]
  - CEREBRAL HAEMORRHAGE [None]
  - DYSARTHRIA [None]
  - DYSKINESIA [None]
  - EAR PAIN [None]
  - EYE PAIN [None]
  - FACIAL PALSY [None]
  - FATIGUE [None]
  - FLUSHING [None]
  - HEADACHE [None]
  - HEMIPLEGIA [None]
  - HYPOAESTHESIA [None]
  - LOSS OF CONSCIOUSNESS [None]
  - MIGRAINE [None]
  - MOTOR DYSFUNCTION [None]
  - NAUSEA [None]
  - NECK PAIN [None]
  - NERVOUS SYSTEM DISORDER [None]
  - PARALYSIS [None]
  - SENSORY DISTURBANCE [None]
  - SINUS BRADYCARDIA [None]
  - SWELLING FACE [None]
  - TETANY [None]
  - VISION BLURRED [None]
  - VISUAL DISTURBANCE [None]
  - VOMITING [None]
